FAERS Safety Report 9767658 (Version 1)
Quarter: 2013Q4

REPORT INFORMATION
  Report Type: Spontaneous
  Country: CA (occurrence: CA)
  Receive Date: 20131217
  Receipt Date: 20131217
  Transmission Date: 20140711
  Serious: Yes (Other)
  Sender: FDA-Public Use
  Company Number: CA-AMGEN-CANSP2013088037

PATIENT
  Age: 62 Year
  Sex: Female

DRUGS (3)
  1. NEUPOGEN [Suspect]
     Indication: PRODUCT USED FOR UNKNOWN INDICATION
     Dosage: 1ML/300MUG, UNK
     Route: 065
     Dates: start: 20131025
  2. CALCIUM [Concomitant]
     Dosage: UNK
  3. VIT D [Concomitant]
     Dosage: UNK

REACTIONS (3)
  - Haematuria [Recovered/Resolved]
  - Injection site bruising [Unknown]
  - Epistaxis [Not Recovered/Not Resolved]
